FAERS Safety Report 4583525-8 (Version None)
Quarter: 2005Q1

REPORT INFORMATION
  Report Type: 
  Country: None (occurrence: None)
  Receive Date: 20050211
  Receipt Date: 20050202
  Transmission Date: 20050727
  Serious: Yes (Death, Hospitalization, Other)
  Sender: FDA-Public Use
  Company Number: 2005-01-1417

PATIENT
  Age: 75 Year
  Sex: Male
  Weight: 46 kg

DRUGS (9)
  1. GARAMICINA (GENTAMICIN SULFATE) INJECTABLE SOLUTION [Suspect]
     Indication: PERIANAL ABSCESS
     Dosage: 120MGX2 INTRAVENOUS
     Route: 042
     Dates: start: 20040914, end: 20040924
  2. MAXIPIME [Concomitant]
  3. ASPIRIN [Concomitant]
  4. PANTOZOL (PANTOPRAZOLE) [Concomitant]
  5. CONCOR [Concomitant]
  6. SYMBICORT (BUDESONIDE/FORMOTEROL) [Concomitant]
  7. DAFALGAN [Concomitant]
  8. SERESTA [Concomitant]
  9. IMIPENEM [Concomitant]

REACTIONS (3)
  - MULTI-ORGAN FAILURE [None]
  - PNEUMONIA ASPIRATION [None]
  - RENAL IMPAIRMENT [None]
